FAERS Safety Report 7127942-0 (Version None)
Quarter: 2010Q4

REPORT INFORMATION
  Report Type: 
  Country: None (occurrence: None)
  Receive Date: 20101112
  Receipt Date: 20101028
  Transmission Date: 20110411
  Serious: No
  Sender: FDA-Public Use
  Company Number: SPI201000276

PATIENT
  Age: 30 Year
  Sex: Female
  Weight: 68.9 kg

DRUGS (1)
  1. AMITIZA [Suspect]
     Dosage: 8 MCG, BID, ORAL
     Route: 048
     Dates: start: 20071101, end: 20071101

REACTIONS (4)
  - CHEST PAIN [None]
  - DYSPNOEA [None]
  - PAINFUL RESPIRATION [None]
  - VERTIGO [None]
